FAERS Safety Report 8187328-7 (Version None)
Quarter: 2012Q1

REPORT INFORMATION
  Report Type: 
  Country: None (occurrence: None)
  Receive Date: 20120306
  Receipt Date: 20120228
  Transmission Date: 20120608
  Serious: Yes (Other)
  Sender: FDA-Public Use
  Company Number: FR-PFIZER INC-2012051921

PATIENT
  Age: 68 Year
  Sex: Male

DRUGS (4)
  1. IRINOTECAN HCL [Suspect]
     Indication: GASTRIC CANCER
     Dosage: UNK
     Route: 042
     Dates: start: 20110810
  2. FLUOROURACIL [Suspect]
     Indication: GASTRIC CANCER
     Dosage: UNK
     Route: 042
     Dates: start: 20110810
  3. OXALIPLATIN [Suspect]
     Indication: GASTRIC CANCER
     Dosage: UNK
     Route: 042
     Dates: start: 20110810
  4. LEUCOVORIN CALCIUM [Concomitant]
     Indication: GASTRIC CANCER
     Dosage: UNK
     Route: 042
     Dates: start: 20110810

REACTIONS (2)
  - NEUTROPENIA [None]
  - SEPTIC SHOCK [None]
